FAERS Safety Report 15992575 (Version 2)
Quarter: 2019Q1

REPORT INFORMATION
  Report Type: Report from Study
  Country: US (occurrence: US)
  Receive Date: 20190221
  Receipt Date: 20190313
  Transmission Date: 20190418
  Serious: Yes (Hospitalization, Other)
  Sender: FDA-Public Use
  Company Number: US-ACTELION-A-NJ2019-186233

PATIENT
  Age: 77 Year
  Sex: Female

DRUGS (1)
  1. OPSUMIT [Suspect]
     Active Substance: MACITENTAN
     Indication: PULMONARY ARTERIAL HYPERTENSION
     Dosage: 10 MG, QD
     Route: 048
     Dates: start: 20190118, end: 20190131

REACTIONS (7)
  - Heart rate increased [Unknown]
  - Pulmonary oedema [Unknown]
  - Oxygen saturation decreased [Unknown]
  - Lung disorder [Unknown]
  - Cardiac pacemaker insertion [Unknown]
  - Adverse event [Recovering/Resolving]
  - Circulatory collapse [Recovering/Resolving]

NARRATIVE: CASE EVENT DATE: 20190130
